FAERS Safety Report 14962012 (Version 1)
Quarter: 2018Q2

REPORT INFORMATION
  Report Type: Spontaneous
  Country: US (occurrence: US)
  Receive Date: 20180601
  Receipt Date: 20180601
  Transmission Date: 20180711
  Serious: No
  Sender: FDA-Public Use
  Company Number: US-ASTRAZENECA-2018SE60262

PATIENT
  Sex: Female

DRUGS (3)
  1. SODIUM ALGINATE [Concomitant]
     Active Substance: SODIUM ALGINATE
     Indication: OSTEOPOROSIS
     Route: 048
     Dates: start: 201802
  2. PREDNISONE. [Concomitant]
     Active Substance: PREDNISONE
     Indication: LUNG DISORDER
     Route: 048
  3. SYMBICORT [Suspect]
     Active Substance: BUDESONIDE\FORMOTEROL FUMARATE DIHYDRATE
     Indication: PULMONARY FIBROSIS
     Dosage: UNKNOWN DOSE UNKNOWN
     Route: 055
     Dates: start: 2017

REACTIONS (5)
  - Dyspnoea [Not Recovered/Not Resolved]
  - Product use in unapproved indication [Not Recovered/Not Resolved]
  - Expired product administered [Not Recovered/Not Resolved]
  - Off label use [Not Recovered/Not Resolved]
  - Feeling abnormal [Not Recovered/Not Resolved]

NARRATIVE: CASE EVENT DATE: 2017
